FAERS Safety Report 6943497-5 (Version None)
Quarter: 2010Q3

REPORT INFORMATION
  Report Type: 
  Country: None (occurrence: None)
  Receive Date: 20100826
  Receipt Date: 20100819
  Transmission Date: 20110219
  Serious: Yes (Hospitalization)
  Sender: FDA-Public Use
  Company Number: NL-MPIJNJ-2008-02231

PATIENT

DRUGS (10)
  1. VELCADE [Suspect]
     Indication: MULTIPLE MYELOMA
     Dosage: 2 MG, UNK
     Route: 042
     Dates: start: 20080623, end: 20080804
  2. MELPHALAN [Suspect]
     Indication: MULTIPLE MYELOMA
     Dosage: 168 MG, UNK
     Route: 042
     Dates: start: 20080520, end: 20080521
  3. TRAMADOL HCL [Concomitant]
     Indication: PAIN
     Dosage: 150 MG, UNK
     Route: 048
     Dates: start: 20080520, end: 20080611
  4. ACETAMINOPHEN [Concomitant]
     Indication: PAIN
     Dosage: 4000 MG, UNK
     Route: 048
     Dates: start: 20080523, end: 20080611
  5. PANTOPRAZOLE SODIUM [Concomitant]
     Indication: NAUSEA
     Dosage: 40 MG, UNK
     Route: 042
     Dates: start: 20080530, end: 20080611
  6. PRIMPERAN TAB [Concomitant]
     Indication: NAUSEA
     Dosage: 60 MG, UNK
     Route: 042
     Dates: start: 20080531, end: 20080611
  7. FRAXIPARINE [Concomitant]
     Indication: PROPHYLAXIS
     Dosage: 0.3 UNK, UNK
     Route: 058
     Dates: start: 20080523, end: 20080611
  8. SLOW-K [Concomitant]
     Indication: HYPOKALAEMIA
     Dosage: 3600 MG, UNK
     Route: 048
     Dates: start: 20080617, end: 20080811
  9. FLAGYL [Concomitant]
     Indication: PROPHYLAXIS
     Dosage: 1000 MG, UNK
     Route: 048
     Dates: start: 20080717, end: 20080804
  10. LOPERAMIDE [Concomitant]
     Indication: DIARRHOEA
     Dosage: UNK
     Route: 048
     Dates: start: 20080715, end: 20080804

REACTIONS (2)
  - CLOSTRIDIUM DIFFICILE COLITIS [None]
  - DECREASED APPETITE [None]
